FAERS Safety Report 8440906-X (Version None)
Quarter: 2012Q2

REPORT INFORMATION
  Report Type: 
  Country: None (occurrence: None)
  Receive Date: 20120615
  Receipt Date: 20120606
  Transmission Date: 20120825
  Serious: Yes (Hospitalization, Other)
  Sender: FDA-Public Use
  Company Number: US-BAYER-2012-042471

PATIENT
  Age: 28 Year
  Sex: Female
  Weight: 91.61 kg

DRUGS (8)
  1. ROSULA [Concomitant]
  2. MINOCYCLINE [Concomitant]
  3. SULFACETAMIDE SODIUM W/SULFUR [Concomitant]
     Route: 061
  4. IBUPROFEN [Concomitant]
     Indication: PAIN
     Dosage: 800 MG, UNK
     Dates: start: 20070902
  5. SKELAXIN [Concomitant]
     Dosage: 800 MG
  6. PROPOXYPHENE NAPSYLATE W/ ACETAMINOPHEN [Concomitant]
     Dosage: 100 AND 650 MG 1 BEDTIME PRN
  7. YASMIN [Suspect]
     Indication: CONTRACEPTION
     Dosage: UNK
     Dates: start: 20070219, end: 20070924
  8. METRONIDAZOLE [Concomitant]
     Dosage: 500 MG, UNK

REACTIONS (10)
  - ABDOMINAL PAIN [None]
  - MENTAL STATUS CHANGES [None]
  - INJURY [None]
  - CONFUSIONAL STATE [None]
  - DISORIENTATION [None]
  - APHASIA [None]
  - NAUSEA [None]
  - PULMONARY EMBOLISM [None]
  - INTRACRANIAL VENOUS SINUS THROMBOSIS [None]
  - PAIN [None]
